FAERS Safety Report 8160263-6 (Version None)
Quarter: 2012Q1

REPORT INFORMATION
  Report Type: 
  Country: None (occurrence: None)
  Receive Date: 20120223
  Receipt Date: 20120223
  Transmission Date: 20120608
  Serious: No
  Sender: FDA-Public Use
  Company Number: None

PATIENT
  Age: 34 Year
  Sex: Female
  Weight: 54.431 kg

DRUGS (2)
  1. ZITHROMYCIN [Concomitant]
  2. COMPAZINE [Suspect]
     Indication: GASTROENTERITIS
     Dates: start: 20120221, end: 20120221

REACTIONS (3)
  - DYSTONIA [None]
  - TARDIVE DYSKINESIA [None]
  - PROTRUSION TONGUE [None]
